FAERS Safety Report 24892413 (Version 2)
Quarter: 2025Q3

REPORT INFORMATION
  Report Type: Spontaneous
  Country: CA (occurrence: CA)
  Receive Date: 20250128
  Receipt Date: 20250811
  Transmission Date: 20251020
  Serious: Yes (Death, Other)
  Sender: DR REDDYS
  Company Number: None

PATIENT
  Age: 72 Year
  Sex: Male

DRUGS (36)
  1. AZACITIDINE [Suspect]
     Active Substance: AZACITIDINE
     Indication: Acute myeloid leukaemia
  2. AZACITIDINE [Suspect]
     Active Substance: AZACITIDINE
     Route: 065
  3. AZACITIDINE [Suspect]
     Active Substance: AZACITIDINE
     Route: 065
  4. AZACITIDINE [Suspect]
     Active Substance: AZACITIDINE
     Route: 065
  5. AZACITIDINE [Suspect]
     Active Substance: AZACITIDINE
     Route: 065
  6. AZACITIDINE [Suspect]
     Active Substance: AZACITIDINE
     Route: 065
  7. AZACITIDINE [Suspect]
     Active Substance: AZACITIDINE
     Route: 065
  8. AZACITIDINE [Suspect]
     Active Substance: AZACITIDINE
     Route: 065
  9. AZACITIDINE [Suspect]
     Active Substance: AZACITIDINE
     Indication: Product used for unknown indication
     Route: 048
  10. AZACITIDINE [Suspect]
     Active Substance: AZACITIDINE
     Route: 048
  11. AZACITIDINE [Suspect]
     Active Substance: AZACITIDINE
     Route: 048
  12. AZACITIDINE [Suspect]
     Active Substance: AZACITIDINE
     Route: 048
  13. AZACITIDINE [Suspect]
     Active Substance: AZACITIDINE
     Route: 048
  14. AZACITIDINE [Suspect]
     Active Substance: AZACITIDINE
     Route: 048
  15. AZACITIDINE [Suspect]
     Active Substance: AZACITIDINE
     Route: 048
  16. AZACITIDINE [Suspect]
     Active Substance: AZACITIDINE
     Route: 048
  17. AZACITIDINE [Suspect]
     Active Substance: AZACITIDINE
     Route: 048
  18. AZACITIDINE [Suspect]
     Active Substance: AZACITIDINE
     Route: 048
  19. VENETOCLAX [Suspect]
     Active Substance: VENETOCLAX
     Indication: Acute myeloid leukaemia
     Route: 048
  20. VENETOCLAX [Suspect]
     Active Substance: VENETOCLAX
     Route: 048
  21. VENETOCLAX [Suspect]
     Active Substance: VENETOCLAX
     Route: 048
  22. VENETOCLAX [Suspect]
     Active Substance: VENETOCLAX
     Route: 048
  23. VENETOCLAX [Suspect]
     Active Substance: VENETOCLAX
     Route: 048
  24. VENETOCLAX [Suspect]
     Active Substance: VENETOCLAX
     Route: 048
  25. VENETOCLAX [Suspect]
     Active Substance: VENETOCLAX
     Route: 048
  26. VENETOCLAX [Suspect]
     Active Substance: VENETOCLAX
     Route: 048
  27. VENETOCLAX [Suspect]
     Active Substance: VENETOCLAX
     Route: 048
  28. VENETOCLAX [Suspect]
     Active Substance: VENETOCLAX
     Route: 048
  29. VENETOCLAX [Suspect]
     Active Substance: VENETOCLAX
     Route: 048
  30. VENETOCLAX [Suspect]
     Active Substance: VENETOCLAX
     Route: 048
  31. VENETOCLAX [Suspect]
     Active Substance: VENETOCLAX
     Route: 048
  32. VENETOCLAX [Suspect]
     Active Substance: VENETOCLAX
     Route: 048
  33. VENETOCLAX [Suspect]
     Active Substance: VENETOCLAX
     Route: 048
  34. VENETOCLAX [Suspect]
     Active Substance: VENETOCLAX
     Route: 048
  35. COVID 19 VACCINATION [Concomitant]
     Indication: COVID-19 prophylaxis
  36. FLUCONAZOLE [Concomitant]
     Active Substance: FLUCONAZOLE
     Indication: Product used for unknown indication

REACTIONS (1)
  - Pneumonia [Fatal]
